FAERS Safety Report 8430856-7 (Version None)
Quarter: 2012Q2

REPORT INFORMATION
  Report Type: 
  Country: None (occurrence: None)
  Receive Date: 20120612
  Receipt Date: 20120606
  Transmission Date: 20120825
  Serious: Yes (Other)
  Sender: FDA-Public Use
  Company Number: US-PFIZER INC-2012136654

PATIENT
  Sex: Female
  Weight: 73.923 kg

DRUGS (8)
  1. SERTRALINE HYDROCHLORIDE [Suspect]
     Indication: DEPRESSION
  2. DICLOFENAC [Concomitant]
     Indication: ARTHRITIS
     Dosage: UNK
  3. ZOLOFT [Suspect]
     Indication: DEPRESSION
  4. SERTRALINE HYDROCHLORIDE [Suspect]
     Indication: ANXIETY
     Dosage: 50 MG, 1X/DAY
     Route: 048
     Dates: start: 20120101, end: 20120101
  5. SERTRALINE HYDROCHLORIDE [Suspect]
     Indication: DEPRESSION
  6. ZOLOFT [Suspect]
     Indication: ANXIETY
     Dosage: 50 MG, 1X/DAY
     Route: 048
     Dates: end: 20120101
  7. SIMVASTATIN [Concomitant]
     Indication: BLOOD CHOLESTEROL INCREASED
     Dosage: UNK
  8. SERTRALINE HYDROCHLORIDE [Suspect]
     Indication: ANXIETY
     Dosage: 50 MG, 1X/DAY
     Route: 048
     Dates: start: 20120101, end: 20120501

REACTIONS (8)
  - ABNORMAL BEHAVIOUR [None]
  - MOOD ALTERED [None]
  - AGGRESSION [None]
  - ANXIETY [None]
  - NERVOUSNESS [None]
  - INSOMNIA [None]
  - DRUG INEFFECTIVE [None]
  - FEELING JITTERY [None]
